FAERS Safety Report 16880330 (Version 1)
Quarter: 2019Q4

REPORT INFORMATION
  Report Type: Spontaneous
  Country: FR (occurrence: FR)
  Receive Date: 20191003
  Receipt Date: 20191003
  Transmission Date: 20200122
  Serious: Yes (Death)
  Sender: FDA-Public Use
  Company Number: FR-ROCHE-2427939

PATIENT
  Age: 68 Year
  Sex: Male
  Weight: 94 kg

DRUGS (1)
  1. AVASTIN [Suspect]
     Active Substance: BEVACIZUMAB
     Indication: COLON CANCER METASTATIC
     Dosage: STRENGTH; 25 MG/ML
     Route: 041
     Dates: start: 20190829

REACTIONS (2)
  - Hepatic ischaemia [Fatal]
  - Gastrointestinal ischaemia [Fatal]

NARRATIVE: CASE EVENT DATE: 20190904
